FAERS Safety Report 8574926-1 (Version None)
Quarter: 2012Q2

REPORT INFORMATION
  Report Type: 
  Country: None (occurrence: None)
  Receive Date: 20120423
  Receipt Date: 20091109
  Transmission Date: 20120825
  Serious: Yes (Other)
  Sender: FDA-Public Use
  Company Number: PHEH2009US15417

PATIENT
  Age: 74 Year
  Sex: Male

DRUGS (6)
  1. ASPIRIN [Concomitant]
  2. TRIHEXYPHENIDYL HCL [Concomitant]
  3. PREDNISONE (PREDISONE) [Concomitant]
  4. HYDREA [Concomitant]
  5. EXJADE [Suspect]
     Indication: BLOOD IRON INCREASED
     Dosage: 1750 MG, QD, ORAL
     Route: 048
     Dates: start: 20090316, end: 20091027
  6. EXJADE [Suspect]
     Indication: TRANSFUSION
     Dosage: 1750 MG, QD, ORAL
     Route: 048
     Dates: start: 20090316, end: 20091027

REACTIONS (3)
  - BLOOD UREA INCREASED [None]
  - BLOOD CREATININE INCREASED [None]
  - RENAL IMPAIRMENT [None]
